FAERS Safety Report 7864046-3 (Version None)
Quarter: 2011Q4

REPORT INFORMATION
  Report Type: 
  Country: None (occurrence: None)
  Receive Date: 20111028
  Receipt Date: 20111013
  Transmission Date: 20120403
  Serious: Yes (Death)
  Sender: FDA-Public Use
  Company Number: CN-JNJFOC-20110907074

PATIENT
  Age: 79 Year
  Sex: Male
  Weight: 56 kg

DRUGS (7)
  1. GALANTAMINE HYDROBROMIDE [Suspect]
     Route: 048
     Dates: start: 20110721, end: 20110821
  2. GALANTAMINE HYDROBROMIDE [Suspect]
     Indication: SENILE DEMENTIA
     Route: 048
     Dates: start: 20110822, end: 20110830
  3. GALANTAMINE HYDROBROMIDE [Suspect]
     Route: 048
     Dates: start: 20110721, end: 20110821
  4. ENALAPRIL MALEATE [Concomitant]
     Indication: BLOOD PRESSURE
     Dosage: MORNING
     Route: 048
  5. OLANZAPINE [Concomitant]
     Route: 048
  6. GALANTAMINE HYDROBROMIDE [Suspect]
     Indication: DEMENTIA ALZHEIMER'S TYPE
     Route: 048
     Dates: start: 20110822, end: 20110830
  7. NOVOLIN R [Concomitant]
     Indication: BLOOD GLUCOSE ABNORMAL
     Dosage: 12 U IN MORNING AND 6 U IN NIGHT
     Route: 058

REACTIONS (2)
  - CHOLELITHIASIS [None]
  - CHOLECYSTITIS ACUTE [None]
